FAERS Safety Report 4479580-6 (Version None)
Quarter: 2004Q4

REPORT INFORMATION
  Report Type: 
  Country: None (occurrence: None)
  Receive Date: 20041015
  Receipt Date: 20041006
  Transmission Date: 20050328
  Serious: Yes (Hospitalization)
  Sender: FDA-Public Use
  Company Number: 2004PK01660

PATIENT
  Age: 56 Year
  Sex: Female
  Weight: 84 kg

DRUGS (2)
  1. NOLVADEX [Suspect]
     Indication: BREAST CANCER
     Dosage: 20 MG DIALY PO
     Route: 048
     Dates: start: 20000301
  2. CONCOR [Concomitant]

REACTIONS (1)
  - ENDOMETRIAL HYPERPLASIA [None]
